FAERS Safety Report 15096110 (Version 1)
Quarter: 2018Q3

REPORT INFORMATION
  Report Type: Spontaneous
  Country: FR (occurrence: FR)
  Receive Date: 20180702
  Receipt Date: 20180702
  Transmission Date: 20181010
  Serious: Yes (Hospitalization)
  Sender: FDA-Public Use
  Company Number: FR-ROCHE-2146793

PATIENT
  Age: 50 Year
  Sex: Male

DRUGS (6)
  1. ALCOOL [Suspect]
     Active Substance: ALCOHOL
     Indication: ALCOHOL USE
     Dosage: 28 U/JOUR
     Route: 048
  2. RESIN. [Suspect]
     Active Substance: RESIN
     Indication: DRUG ABUSE
     Dosage: 10/MONTH
     Route: 055
  3. COCAINE [Suspect]
     Active Substance: COCAINE
     Indication: DRUG ABUSE
     Route: 045
  4. CANNABIS [Suspect]
     Active Substance: CANNABIS SATIVA SUBSP. INDICA TOP
     Indication: DRUG ABUSE
     Dosage: 10/MONTH
     Route: 055
  5. VALIUM [Suspect]
     Active Substance: DIAZEPAM
     Indication: PRODUCT USED FOR UNKNOWN INDICATION
     Dosage: 4?5 CP
     Route: 048
  6. BUPRENORPHINE. [Suspect]
     Active Substance: BUPRENORPHINE
     Indication: PRODUCT USED FOR UNKNOWN INDICATION
     Dosage: 16 MG FRACTIONATED
     Route: 048

REACTIONS (6)
  - Drug abuse [Unknown]
  - Alcohol abuse [Unknown]
  - Stasis dermatitis [Recovering/Resolving]
  - Drug dependence [Unknown]
  - Oedema [Recovering/Resolving]
  - Intentional product misuse [Unknown]
